FAERS Safety Report 21871711 (Version 1)
Quarter: 2023Q1

REPORT INFORMATION
  Report Type: Spontaneous
  Country: US (occurrence: US)
  Receive Date: 20230117
  Receipt Date: 20230117
  Transmission Date: 20230417
  Serious: No
  Sender: FDA-Public Use
  Company Number: US-PFIZER INC-PV202300009016

PATIENT
  Age: 39 Year
  Sex: Female

DRUGS (11)
  1. FLAGYL [Suspect]
     Active Substance: METRONIDAZOLE\METRONIDAZOLE HYDROCHLORIDE
     Dosage: UNK
  2. D-MANNOSE [Concomitant]
     Dosage: UNK
  3. DENOSUMAB [Concomitant]
     Active Substance: DENOSUMAB
     Dosage: UNK
  4. DESLORATADINE [Concomitant]
     Active Substance: DESLORATADINE
     Dosage: UNK
  5. EPINASTINE HYDROCHLORIDE [Concomitant]
     Active Substance: EPINASTINE HYDROCHLORIDE
     Dosage: UNK
  6. LACTOBACILLUS ACIDOPHILUS [Concomitant]
     Active Substance: LACTOBACILLUS ACIDOPHILUS
     Dosage: UNK
  7. METOPROLOL SUCCINATE [Concomitant]
     Active Substance: METOPROLOL SUCCINATE
     Dosage: UNK
  8. MIDODRINE [Concomitant]
     Active Substance: MIDODRINE
     Dosage: UNK
  9. LEVAQUIN [Concomitant]
     Active Substance: LEVOFLOXACIN
     Dosage: UNK
  10. SPINRAZA [Concomitant]
     Active Substance: NUSINERSEN
     Dosage: UNK
  11. MONTELUKAST [Concomitant]
     Active Substance: MONTELUKAST SODIUM
     Dosage: UNK

REACTIONS (2)
  - Diarrhoea [Unknown]
  - Gastrointestinal disorder [Unknown]
